FAERS Safety Report 10277030 (Version 4)
Quarter: 2015Q1

REPORT INFORMATION
  Report Type: Not Available
  Country: DE (occurrence: DE)
  Receive Date: 20140703
  Receipt Date: 20150210
  Transmission Date: 20150720
  Serious: Yes (Death, Other)
  Sender: FDA-Public Use
  Company Number: DE-NAPPMUNDI-DEU-2014-0014828

PATIENT
  Sex: Female

DRUGS (3)
  1. MORPHINE SULFATE INJECTABLE [Interacting]
     Active Substance: MORPHINE SULFATE
     Dosage: 0.5 ML, HS
     Route: 042
     Dates: start: 20120430, end: 20120501
  2. HALOPERIDOL. [Interacting]
     Active Substance: HALOPERIDOL
     Indication: PALLIATIVE CARE
     Dosage: UNK
     Route: 042
     Dates: start: 20120430, end: 20120507
  3. MORPHINE SULFATE INJECTABLE [Suspect]
     Active Substance: MORPHINE SULFATE
     Indication: PALLIATIVE CARE
     Dosage: 0.3 ML, HS
     Route: 042
     Dates: start: 20120501, end: 20120909

REACTIONS (4)
  - Bradycardia [Recovered/Resolved]
  - Somnolence [Unknown]
  - Sudden death [Fatal]
  - Drug interaction [Unknown]

NARRATIVE: CASE EVENT DATE: 201205
